FAERS Safety Report 4960120-X (Version None)
Quarter: 2006Q1

REPORT INFORMATION
  Report Type: 
  Country: None (occurrence: None)
  Receive Date: 20060328
  Receipt Date: 20060316
  Transmission Date: 20060701
  Serious: Yes (Hospitalization)
  Sender: FDA-Public Use
  Company Number: 2006PV009992

PATIENT
  Age: 72 Year
  Sex: Female
  Weight: 58.0604 kg

DRUGS (6)
  1. BYETTA [Suspect]
     Indication: DIABETES MELLITUS NON-INSULIN-DEPENDENT
     Dosage: 5 MCG;BID;SC
     Route: 058
     Dates: start: 20051110
  2. BYETTA [Suspect]
  3. GLUCOPHAGE [Concomitant]
  4. AVANDIA [Concomitant]
  5. METOPROLOL [Concomitant]
  6. ASPIRIN [Concomitant]

REACTIONS (6)
  - ANKLE FRACTURE [None]
  - BLOOD GLUCOSE INCREASED [None]
  - DRY MOUTH [None]
  - ROAD TRAFFIC ACCIDENT [None]
  - SPINAL COMPRESSION FRACTURE [None]
  - STERNAL FRACTURE [None]
